FAERS Safety Report 5218331-4 (Version None)
Quarter: 2007Q1

REPORT INFORMATION
  Report Type: 
  Country: None (occurrence: None)
  Receive Date: 20070124
  Receipt Date: 20070112
  Transmission Date: 20070707
  Serious: Yes (Death)
  Sender: FDA-Public Use
  Company Number: PL-PFIZER INC-2007002077

PATIENT
  Sex: Male
  Weight: 86 kg

DRUGS (7)
  1. VFEND [Suspect]
     Indication: BRONCHOPULMONARY ASPERGILLOSIS
     Route: 042
     Dates: start: 20061222, end: 20061223
  2. VFEND [Suspect]
  3. ACYCLOVIR [Concomitant]
     Route: 048
     Dates: start: 20061220, end: 20061225
  4. CYCLOPHOSPHAMIDE [Concomitant]
     Dates: start: 20061121, end: 20061123
  5. CLADRIBINE [Concomitant]
     Dates: start: 20061121, end: 20061123
  6. FLUCONAZOLE [Concomitant]
     Route: 048
  7. CLOTRIMAZOLE [Concomitant]
     Route: 048
     Dates: start: 20061214, end: 20061222

REACTIONS (3)
  - METABOLIC DISORDER [None]
  - RESPIRATORY FAILURE [None]
  - RHABDOMYOLYSIS [None]
